FAERS Safety Report 16337008 (Version 1)
Quarter: 2019Q2

REPORT INFORMATION
  Report Type: Spontaneous
  Country: JP (occurrence: JP)
  Receive Date: 20190521
  Receipt Date: 20190521
  Transmission Date: 20190711
  Serious: Yes (Other)
  Sender: FDA-Public Use
  Company Number: JP-PFIZER INC-2019208454

PATIENT
  Age: 63 Year
  Sex: Male

DRUGS (3)
  1. NIVOLUMAB [Suspect]
     Active Substance: NIVOLUMAB
     Dosage: UNK
  2. AXITINIB [Suspect]
     Active Substance: AXITINIB
     Dosage: 8 MG, UNK
  3. AXITINIB [Suspect]
     Active Substance: AXITINIB
     Dosage: 10 MG, UNK

REACTIONS (2)
  - Hypothyroidism [Recovering/Resolving]
  - Adrenal insufficiency [Recovering/Resolving]
